FAERS Safety Report 5517425-3 (Version None)
Quarter: 2007Q4

REPORT INFORMATION
  Report Type: 
  Country: None (occurrence: None)
  Receive Date: 20071114
  Receipt Date: 20071106
  Transmission Date: 20080405
  Serious: Yes (Life-Threatening, Hospitalization)
  Sender: FDA-Public Use
  Company Number: JP-JNJFOC-20070502370

PATIENT
  Sex: Male

DRUGS (17)
  1. REMICADE [Suspect]
     Route: 042
  2. REMICADE [Suspect]
     Route: 042
  3. REMICADE [Suspect]
     Route: 042
  4. REMICADE [Suspect]
     Route: 042
  5. REMICADE [Suspect]
     Route: 042
  6. REMICADE [Suspect]
     Indication: RHEUMATOID ARTHRITIS
     Route: 042
  7. METHOTREXATE [Suspect]
     Route: 048
  8. METHOTREXATE [Suspect]
     Indication: RHEUMATOID ARTHRITIS
     Route: 048
  9. EVOXAC [Suspect]
     Indication: DRY MOUTH
     Route: 048
  10. AZULFIDINE [Concomitant]
     Indication: RHEUMATOID ARTHRITIS
     Route: 048
  11. ACTARIT [Concomitant]
     Indication: RHEUMATOID ARTHRITIS
     Route: 048
  12. PREDNISOLONE [Concomitant]
     Indication: LYMPHADENITIS
  13. PREDNISOLONE [Concomitant]
     Indication: RHEUMATOID ARTHRITIS
  14. VOLTAREN [Concomitant]
     Indication: ARTHRALGIA
     Route: 048
  15. AM [Concomitant]
     Indication: GASTROINTESTINAL DISORDER THERAPY
     Route: 048
  16. INFREE S [Concomitant]
     Indication: ARTHRALGIA
     Route: 048
  17. NEUER [Concomitant]
     Indication: GASTROINTESTINAL DISORDER THERAPY
     Route: 048

REACTIONS (2)
  - HERPES ZOSTER [None]
  - LYMPHOMA [None]
